FAERS Safety Report 6316334-X (Version None)
Quarter: 2009Q3

REPORT INFORMATION
  Report Type: 
  Country: None (occurrence: None)
  Receive Date: 20090820
  Receipt Date: 20090814
  Transmission Date: 20100115
  Serious: Yes (Hospitalization, Other)
  Sender: FDA-Public Use
  Company Number: A0800730A

PATIENT
  Age: 84 Year
  Sex: Male

DRUGS (8)
  1. ARIXTRA [Suspect]
     Indication: DEEP VEIN THROMBOSIS
     Dosage: 7.5MG SINGLE DOSE
     Route: 058
     Dates: start: 20090719, end: 20090719
  2. COREG [Concomitant]
  3. DIOVAN [Concomitant]
  4. WARFARIN [Concomitant]
  5. PRAVACHOL [Concomitant]
  6. CASODEX [Concomitant]
  7. HYDROCORTISONE [Concomitant]
  8. KETOCONAZOLE [Concomitant]
     Indication: PROSTATE CANCER

REACTIONS (3)
  - DYSPNOEA [None]
  - INTERNATIONAL NORMALISED RATIO INCREASED [None]
  - NONSPECIFIC REACTION [None]
